FAERS Safety Report 12525985 (Version 1)
Quarter: 2016Q3

REPORT INFORMATION
  Report Type: Spontaneous
  Country: US (occurrence: None)
  Receive Date: 20160701
  Receipt Date: 20160701
  Transmission Date: 20161109
  Serious: Yes (Hospitalization)
  Sender: FDA-Public Use
  Company Number: None

PATIENT
  Age: 65 Year
  Sex: Male
  Weight: 77.3 kg

DRUGS (2)
  1. ENOXAPARIN (GENERIC) [Suspect]
     Active Substance: ENOXAPARIN
     Indication: ATRIAL FIBRILLATION
     Dosage: ML BID SQ
     Route: 058
     Dates: start: 20160607, end: 20160612
  2. WARFARIN [Suspect]
     Active Substance: WARFARIN
     Dosage: MG EVERY DAY PO
     Route: 048

REACTIONS (4)
  - Haematoma [None]
  - Complication associated with device [None]
  - Blister [None]
  - Pain [None]

NARRATIVE: CASE EVENT DATE: 20160611
